FAERS Safety Report 9210427 (Version 2)
Quarter: 2013Q4

REPORT INFORMATION
  Report Type: Spontaneous
  Country: US (occurrence: US)
  Receive Date: 20130404
  Receipt Date: 20131210
  Transmission Date: 20140711
  Serious: Yes (Other)
  Sender: FDA-Public Use
  Company Number: US-BAYER-2013-041490

PATIENT
  Age: 28 Year
  Sex: Female

DRUGS (12)
  1. YAZ [Suspect]
     Dosage: UNK
     Dates: start: 200610
  2. YASMIN [Suspect]
     Dosage: UNK
     Dates: start: 200610
  3. OCELLA [Suspect]
     Dosage: UNK
     Dates: start: 200610
  4. AMOXICILLIN [Concomitant]
     Dosage: 500 MG, FOR 10 DAYS
  5. CLARITHROMYCIN [Concomitant]
     Dosage: 500 MG, BID
     Route: 048
  6. TRAMADOL [Concomitant]
     Indication: PAIN
     Dosage: 50 MG, 2-3 TABLETS TID
     Route: 048
  7. NICOTROL [Concomitant]
  8. ALEVE [Concomitant]
  9. AMITRIPTYLINE [Concomitant]
     Dosage: 10 MG, UNK
  10. PRILOSEC [Concomitant]
     Dosage: 400 MG, DAILY
  11. CARAFATE [Concomitant]
     Dosage: 1 G, UNK
     Route: 048
  12. VICODIN [Concomitant]
     Indication: PAIN
     Dosage: 5/500, ONE TO TWO TABLETS EVERY 6 HOURS PRN
     Route: 048

REACTIONS (6)
  - Gallbladder injury [None]
  - Cholecystitis chronic [None]
  - Injury [None]
  - Pain [None]
  - Fear of disease [None]
  - Pain [None]
